FAERS Safety Report 5392422-X (Version None)
Quarter: 2007Q3

REPORT INFORMATION
  Report Type: 
  Country: None (occurrence: None)
  Receive Date: 20070720
  Receipt Date: 20070713
  Transmission Date: 20080115
  Serious: Yes (Other)
  Sender: FDA-Public Use
  Company Number: B0479589A

PATIENT
  Age: 71 Year
  Sex: Female

DRUGS (5)
  1. AVANDIA [Suspect]
     Indication: DIABETES MELLITUS
     Dosage: 8MG PER DAY
     Route: 048
     Dates: start: 20050101, end: 20070607
  2. CARVEDILOL [Concomitant]
     Dosage: 25MG PER DAY
     Route: 048
  3. METFORMIN HYDROCHLORIDE [Concomitant]
     Dosage: 2000MG PER DAY
     Route: 048
  4. MEDIPO [Concomitant]
     Dosage: 20MG PER DAY
     Route: 048
  5. COTAREG [Concomitant]
     Dosage: 160MG PER DAY
     Route: 048

REACTIONS (2)
  - ANKLE FRACTURE [None]
  - JOINT SPRAIN [None]
